FAERS Safety Report 8592847-5 (Version None)
Quarter: 2012Q3

REPORT INFORMATION
  Report Type: 
  Country: None (occurrence: None)
  Receive Date: 20120814
  Receipt Date: 20120424
  Transmission Date: 20120928
  Serious: Yes (Other)
  Sender: FDA-Public Use
  Company Number: JP-009507513-1208JPN005594

PATIENT

DRUGS (15)
  1. REBETOL [Suspect]
     Route: 048
     Dates: start: 20120709
  2. PEG-INTRON [Suspect]
     Dosage: 1.2MCG/KG/WEEK
     Route: 058
     Dates: start: 20120604
  3. REBETOL [Suspect]
     Indication: HEPATITIS C
     Route: 048
     Dates: start: 20120117, end: 20120219
  4. REBETOL [Suspect]
     Route: 048
     Dates: start: 20120305, end: 20120408
  5. REBETOL [Suspect]
     Route: 048
     Dates: start: 20120409, end: 20120422
  6. REBETOL [Suspect]
     Route: 048
     Dates: start: 20120618, end: 20120708
  7. TELAVIC [Suspect]
     Indication: HEPATITIS C
     Route: 048
     Dates: start: 20120117, end: 20120409
  8. PEG-INTRON [Suspect]
     Indication: HEPATITIS C
     Dosage: 1.5MCG/KG/WEEK
     Route: 058
     Dates: start: 20120117, end: 20120220
  9. PEG-INTRON [Suspect]
     Dosage: 1.3MCG/KG/WEEK
     Route: 058
     Dates: start: 20120227, end: 20120227
  10. PEG-INTRON [Suspect]
     Dosage: 0.9MCG/KG/WEEK
     Route: 058
     Dates: start: 20120409, end: 20120528
  11. PEG-INTRON [Suspect]
     Dosage: 0.9MCG/KG/WEEK
     Route: 058
     Dates: start: 20120305, end: 20120305
  12. PEG-INTRON [Suspect]
     Dosage: 1.3MCG/KG/WEEK
     Route: 058
     Dates: start: 20120312, end: 20120402
  13. REBETOL [Suspect]
     Route: 048
     Dates: start: 20120220, end: 20120304
  14. REBETOL [Suspect]
     Route: 048
     Dates: start: 20120423, end: 20120617
  15. FAMOTIDINE [Concomitant]
     Indication: PROPHYLAXIS
     Route: 048
     Dates: start: 20120117

REACTIONS (2)
  - HAEMOGLOBIN DECREASED [None]
  - PLATELET COUNT DECREASED [None]
